FAERS Safety Report 26154216 (Version 1)
Quarter: 2025Q4

REPORT INFORMATION
  Report Type: Spontaneous
  Country: US (occurrence: US)
  Receive Date: 20251215
  Receipt Date: 20251215
  Transmission Date: 20260117
  Serious: No
  Sender: SANOFI AVENTIS
  Company Number: US-SA-2025SA371794

PATIENT
  Sex: Female

DRUGS (6)
  1. DUPIXENT [Suspect]
     Active Substance: DUPILUMAB
     Indication: Dermatitis atopic
     Dosage: 300 MG, QOW
     Route: 058
  2. MECLIZINE HYDROCHLORIDE [Interacting]
     Active Substance: MECLIZINE HYDROCHLORIDE
  3. MAGNESIUM [Concomitant]
     Active Substance: MAGNESIUM
  4. MOUNJARO [Concomitant]
     Active Substance: TIRZEPATIDE
  5. VITAMIN K2 (MK 7) WITH NATTOKINASE [Concomitant]
  6. BAYER LOW DOSE [Concomitant]
     Active Substance: ASPIRIN

REACTIONS (1)
  - Middle ear effusion [Not Recovered/Not Resolved]
